FAERS Safety Report 23342461 (Version 2)
Quarter: 2024Q1

REPORT INFORMATION
  Report Type: Spontaneous
  Country: PT (occurrence: PT)
  Receive Date: 20231227
  Receipt Date: 20240206
  Transmission Date: 20240410
  Serious: Yes (Other)
  Sender: FDA-Public Use
  Company Number: None

PATIENT
  Age: 29 Year
  Sex: Female

DRUGS (4)
  1. DEXAMETHASONE [Suspect]
     Active Substance: DEXAMETHASONE
     Indication: Foetal therapeutic procedure
     Dosage: 6 MG OF 12/12, FOR A TOTAL OF 4 INJECTIONS (ONE AND A HALF AMPOULES PER ADMINISTRATION)
     Route: 030
     Dates: start: 20231122, end: 20231124
  2. PROGESTERONE [Concomitant]
     Active Substance: PROGESTERONE
     Indication: Product used for unknown indication
     Dosage: CHANGE IN DOSAGE TO 200 MG EVERY 12 HOURS ON 11/22/2023
     Route: 067
     Dates: start: 20231122, end: 20231206
  3. PROGESTERONE [Concomitant]
     Active Substance: PROGESTERONE
     Route: 067
  4. MAGNORAL [Concomitant]
     Indication: Product used for unknown indication
     Dosage: 1028.4 MG/10 ML
     Route: 048

REACTIONS (1)
  - Oligohydramnios [Recovered/Resolved]

NARRATIVE: CASE EVENT DATE: 20231128
